FAERS Safety Report 5235592-6 (Version None)
Quarter: 2007Q1

REPORT INFORMATION
  Report Type: 
  Country: None (occurrence: None)
  Receive Date: 20070212
  Receipt Date: 20070129
  Transmission Date: 20070707
  Serious: Yes (Other)
  Sender: FDA-Public Use
  Company Number: US-ROCHE-480411

PATIENT
  Age: 48 Year
  Sex: Male

DRUGS (2)
  1. PEGASYS [Suspect]
     Route: 065
     Dates: start: 20070121, end: 20070121
  2. RIBAVIRIN [Suspect]
     Route: 065
     Dates: start: 20070121

REACTIONS (3)
  - HAEMOPTYSIS [None]
  - INJECTION SITE REACTION [None]
  - OEDEMA PERIPHERAL [None]
